FAERS Safety Report 10043833 (Version 2)
Quarter: 2014Q1

REPORT INFORMATION
  Report Type: Spontaneous
  Country: US (occurrence: US)
  Receive Date: 20140328
  Receipt Date: 20140331
  Transmission Date: 20141002
  Serious: Yes (Death)
  Sender: FDA-Public Use
  Company Number: US-TEVA-470882USA

PATIENT
  Age: 8 Month
  Sex: 0

DRUGS (1)
  1. ACTIQ [Suspect]
     Indication: PRODUCT USED FOR UNKNOWN INDICATION
     Dates: start: 201210, end: 201210

REACTIONS (2)
  - Death [Fatal]
  - Off label use [Unknown]
